FAERS Safety Report 4518656-1 (Version None)
Quarter: 2005Q1

REPORT INFORMATION
  Report Type: 
  Country: None (occurrence: None)
  Receive Date: 20041029
  Receipt Date: 20040923
  Transmission Date: 20050727
  Serious: No
  Sender: FDA-Public Use
  Company Number: 200416950US

PATIENT
  Age: 50 Year
  Sex: Female
  Weight: 69 kg

DRUGS (6)
  1. KETEK [Suspect]
     Indication: SINUSITIS
     Dosage: 400 MG BID
     Dates: start: 20040824, end: 20040828
  2. LORATADINE (CLARITIN) [Concomitant]
  3. MONTELUKAST SODIUM [Concomitant]
  4. SYNTHROID [Concomitant]
  5. PARACETAMOL, DEXTROPROPOXYPHNE NAPSILATE (DARVOCET-N) [Concomitant]
  6. ELAVIL [Concomitant]

REACTIONS (2)
  - RASH [None]
  - VISION BLURRED [None]
